FAERS Safety Report 23602050 (Version 1)
Quarter: 2024Q1

REPORT INFORMATION
  Report Type: Spontaneous
  Country: US (occurrence: US)
  Receive Date: 20240306
  Receipt Date: 20240306
  Transmission Date: 20240409
  Serious: No
  Sender: FDA-Public Use
  Company Number: US-SA-SAC20240229001274

PATIENT
  Age: 30 Year
  Sex: Female
  Weight: 140.16 kg

DRUGS (1)
  1. DUPIXENT [Suspect]
     Active Substance: DUPILUMAB
     Indication: Illness
     Dosage: 300 MG, QW
     Route: 058

REACTIONS (4)
  - Dysphagia [Not Recovered/Not Resolved]
  - Choking sensation [Not Recovered/Not Resolved]
  - Regurgitation [Not Recovered/Not Resolved]
  - Sensation of foreign body [Not Recovered/Not Resolved]

NARRATIVE: CASE EVENT DATE: 20240101
